FAERS Safety Report 9914984 (Version 1)
Quarter: 2014Q1

REPORT INFORMATION
  Report Type: Spontaneous
  Country: DE (occurrence: DE)
  Receive Date: 20140220
  Receipt Date: 20140220
  Transmission Date: 20141002
  Serious: Yes (Other)
  Sender: FDA-Public Use
  Company Number: GXKR2014DE000873

PATIENT
  Sex: Male

DRUGS (2)
  1. IBUHEXAL [Suspect]
     Dosage: 0.5 DF, UNK
     Route: 039
  2. IBUHEXAL [Suspect]
     Dosage: UNK
     Route: 048

REACTIONS (3)
  - Foreign body aspiration [Unknown]
  - Procedural pain [Unknown]
  - Throat irritation [Unknown]
